FAERS Safety Report 4494077-5 (Version None)
Quarter: 2004Q4

REPORT INFORMATION
  Report Type: 
  Country: None (occurrence: None)
  Receive Date: 20041105
  Receipt Date: 20041007
  Transmission Date: 20050328
  Serious: Yes (Life-Threatening, Hospitalization, Other)
  Sender: FDA-Public Use
  Company Number: US-MERCK-0410USA01038

PATIENT
  Age: 19 Year
  Sex: Female

DRUGS (3)
  1. VIOXX [Suspect]
     Indication: HEADACHE
     Route: 048
     Dates: start: 20040701, end: 20040811
  2. VIOXX [Suspect]
     Indication: MYALGIA
     Route: 048
     Dates: start: 20040701, end: 20040811
  3. HORMONAL CONTRACEPTIVES (UNSPECIFIED) [Concomitant]
     Route: 065
     Dates: start: 20030101

REACTIONS (10)
  - ABDOMINAL PAIN [None]
  - ANAEMIA [None]
  - CHEST WALL PAIN [None]
  - FLUID RETENTION [None]
  - HEADACHE [None]
  - NAUSEA [None]
  - OEDEMA PERIPHERAL [None]
  - PAIN [None]
  - THROMBOTIC THROMBOCYTOPENIC PURPURA [None]
  - WEIGHT DECREASED [None]
